FAERS Safety Report 6397214-0 (Version None)
Quarter: 2009Q4

REPORT INFORMATION
  Report Type: 
  Country: None (occurrence: None)
  Receive Date: 20091012
  Receipt Date: 20090930
  Transmission Date: 20100525
  Serious: Yes (Other)
  Sender: FDA-Public Use
  Company Number: AU-PFIZER INC-2009260286

PATIENT
  Age: 48 Year

DRUGS (4)
  1. CHAMPIX [Suspect]
     Indication: SMOKING CESSATION THERAPY
     Dosage: 1 MG, 2X/DAY
     Route: 048
  2. NORDETTE-28 [Concomitant]
     Indication: CONTRACEPTION
     Dosage: 30 UNK, 1X/DAY
  3. PLAQUENIL [Concomitant]
     Indication: RHEUMATOID ARTHRITIS
     Dosage: 200 MG, 2X/DAY
     Route: 048
  4. PULMICORT [Concomitant]
     Indication: ASTHMA
     Dosage: 2 PUFFS TWICE DAILY

REACTIONS (7)
  - ABDOMINAL DISCOMFORT [None]
  - APATHY [None]
  - DEPRESSED MOOD [None]
  - DEREALISATION [None]
  - DIZZINESS [None]
  - MALAISE [None]
  - MEMORY IMPAIRMENT [None]
